FAERS Safety Report 8428394-0 (Version None)
Quarter: 2012Q2

REPORT INFORMATION
  Report Type: 
  Country: None (occurrence: None)
  Receive Date: 20120612
  Receipt Date: 20120604
  Transmission Date: 20120825
  Serious: No
  Sender: FDA-Public Use
  Company Number: US-BIOGENIDEC-2012BI019833

PATIENT
  Sex: Female

DRUGS (5)
  1. AVONEX [Concomitant]
     Route: 030
     Dates: start: 20091001
  2. AVONEX [Concomitant]
     Route: 030
     Dates: start: 20110418
  3. AVONEX [Concomitant]
     Indication: MULTIPLE SCLEROSIS
     Route: 030
     Dates: start: 20010219, end: 20081105
  4. TYSABRI [Suspect]
     Indication: MULTIPLE SCLEROSIS
     Route: 042
     Dates: start: 20090821, end: 20100527
  5. TYSABRI [Suspect]
     Route: 042
     Dates: start: 20120531

REACTIONS (2)
  - MULTIPLE SCLEROSIS [None]
  - HEADACHE [None]
